FAERS Safety Report 24212316 (Version 1)
Quarter: 2024Q3

REPORT INFORMATION
  Report Type: Report from Study
  Country: EG (occurrence: EG)
  Receive Date: 20240815
  Receipt Date: 20240815
  Transmission Date: 20241017
  Serious: Yes (Other)
  Sender: UCB
  Company Number: EG-UCBSA-2024040262

PATIENT

DRUGS (4)
  1. LEVETIRACETAM [Suspect]
     Active Substance: LEVETIRACETAM
     Indication: Epilepsy
     Dosage: DOSE TITRATION (UP TO 20MG/ KG) FOUR OF THEM
  2. LEVETIRACETAM [Suspect]
     Active Substance: LEVETIRACETAM
     Dosage: (UP TO 30 MG/KG) FOUR OF THEM
  3. LEVETIRACETAM [Suspect]
     Active Substance: LEVETIRACETAM
     Dosage: (UP TO 35 MG/KG)
  4. LEVETIRACETAM [Suspect]
     Active Substance: LEVETIRACETAM
     Dosage: EIGHT OF THEM (UP TO 40MG /KG)

REACTIONS (4)
  - Hyperthyroidism [Unknown]
  - Growth retardation [Unknown]
  - Dyslipidaemia [Unknown]
  - Blood pressure diastolic increased [Unknown]
